FAERS Safety Report 19362204 (Version 1)
Quarter: 2021Q2

REPORT INFORMATION
  Report Type: Other
  Country: US (occurrence: US)
  Receive Date: 20210601
  Receipt Date: 20210601
  Transmission Date: 20210717
  Serious: Yes (Hospitalization)
  Sender: FDA-Public Use
  Company Number: US-ROCHE-2835953

PATIENT
  Sex: Male

DRUGS (1)
  1. OCREVUS [Suspect]
     Active Substance: OCRELIZUMAB
     Indication: MULTIPLE SCLEROSIS
     Dosage: (PRESCRIBED AS 300 MG ON DAY 1 AND DAY 16 AND 600 MG ONCE IN 6 MONTHS)
     Route: 042
     Dates: start: 20180709

REACTIONS (2)
  - Nasopharyngitis [Recovered/Resolved]
  - Immunodeficiency [Not Recovered/Not Resolved]
